FAERS Safety Report 9644863 (Version 1)
Quarter: 2013Q4

REPORT INFORMATION
  Report Type: Spontaneous
  Country: US (occurrence: US)
  Receive Date: 20131025
  Receipt Date: 20131025
  Transmission Date: 20140711
  Serious: No
  Sender: FDA-Public Use
  Company Number: US-009507513-1310USA010787

PATIENT
  Age: 51 Year
  Sex: Female

DRUGS (4)
  1. SAPHRIS [Suspect]
     Indication: BIPOLAR DISORDER
     Dosage: 5 MG, HS
     Route: 060
     Dates: start: 20130930, end: 201310
  2. EFFEXOR [Concomitant]
  3. PERCOCET [Concomitant]
  4. SOMA [Concomitant]

REACTIONS (3)
  - Nasal oedema [Unknown]
  - Eye swelling [Unknown]
  - Lip swelling [Unknown]
